FAERS Safety Report 18322628 (Version 1)
Quarter: 2020Q3

REPORT INFORMATION
  Report Type: Spontaneous
  Country: DE (occurrence: DE)
  Receive Date: 20200928
  Receipt Date: 20200928
  Transmission Date: 20201103
  Serious: Yes (Hospitalization)
  Sender: FDA-Public Use
  Company Number: DE-ALLERGAN-2036571US

PATIENT
  Sex: Female
  Weight: 40 kg

DRUGS (4)
  1. MESALAZINE UNK [Suspect]
     Active Substance: MESALAMINE
     Dosage: DAILY DOSE: 3 G GRAM(S) EVERY DAYS
     Route: 048
     Dates: start: 20170705, end: 20170713
  2. MESALAZINE UNK [Suspect]
     Active Substance: MESALAMINE
     Indication: COLITIS ULCERATIVE
     Dosage: DAILY DOSE: 2.5 G GRAM(S) EVERY DAYS
     Route: 048
     Dates: start: 20170714, end: 20170717
  3. MESALAZINE REKTALSCHAUM [Suspect]
     Active Substance: MESALAMINE
     Indication: COLITIS ULCERATIVE
     Dosage: 1 G, QD
     Route: 054
     Dates: start: 20170620
  4. MESALAZINE UNK [Suspect]
     Active Substance: MESALAMINE
     Dosage: DAILY DOSE: 1.5 G GRAM(S) EVERY DAYS
     Route: 048
     Dates: start: 20170620, end: 20170704

REACTIONS (9)
  - Vomiting [Recovered/Resolved]
  - General physical health deterioration [Recovered/Resolved]
  - Pancreatitis [Recovered/Resolved]
  - Off label use [Unknown]
  - Fatigue [Recovered/Resolved]
  - Lipase increased [Recovered/Resolved]
  - Pyrexia [Recovered/Resolved]
  - Headache [Recovered/Resolved]
  - Abdominal pain [Recovered/Resolved]

NARRATIVE: CASE EVENT DATE: 201707
